APPROVED DRUG PRODUCT: DARIFENACIN HYDROBROMIDE
Active Ingredient: DARIFENACIN HYDROBROMIDE
Strength: EQ 7.5MG BASE
Dosage Form/Route: TABLET, EXTENDED RELEASE;ORAL
Application: A207664 | Product #001 | TE Code: AB
Applicant: CIPLA LTD
Approved: Sep 1, 2016 | RLD: No | RS: No | Type: RX